FAERS Safety Report 11559460 (Version 1)
Quarter: 2015Q3

REPORT INFORMATION
  Report Type: Spontaneous
  Country: US (occurrence: US)
  Receive Date: 20150916
  Receipt Date: 20150916
  Transmission Date: 20151125
  Serious: No
  Sender: FDA-Public Use
  Company Number: US-ELI_LILLY_AND_COMPANY-US200808003169

PATIENT
  Age: 80 Year
  Sex: Female

DRUGS (2)
  1. FORTEO [Suspect]
     Active Substance: TERIPARATIDE
     Dosage: UNK, EACH EVENING
     Dates: start: 2008, end: 200808
  2. FORTEO [Suspect]
     Active Substance: TERIPARATIDE
     Dosage: UNK, EACH MORNING
     Dates: start: 200807, end: 2008

REACTIONS (5)
  - Mobility decreased [Recovered/Resolved]
  - Gait disturbance [Recovered/Resolved]
  - Abdominal pain upper [Not Recovered/Not Resolved]
  - Tremor [Recovered/Resolved]
  - Feeling of body temperature change [Recovered/Resolved]

NARRATIVE: CASE EVENT DATE: 200807
